FAERS Safety Report 9180246 (Version 3)
Quarter: 2015Q4

REPORT INFORMATION
  Report Type: Report from Study
  Country: US (occurrence: US)
  Receive Date: 20130322
  Receipt Date: 20151014
  Transmission Date: 20160305
  Serious: Yes (Other)
  Sender: FDA-Public Use
  Company Number: US-BIOGENIDEC-2013BI025316

PATIENT
  Age: 47 Year
  Sex: Female

DRUGS (1)
  1. TYSABRI [Suspect]
     Active Substance: NATALIZUMAB
     Indication: MULTIPLE SCLEROSIS
     Route: 042
     Dates: start: 20121005, end: 20150304

REACTIONS (4)
  - Sarcoidosis [Not Recovered/Not Resolved]
  - Seizure [Not Recovered/Not Resolved]
  - Aneurysm [Not Recovered/Not Resolved]
  - Intracranial aneurysm [Not Recovered/Not Resolved]
